FAERS Safety Report 24096246 (Version 1)
Quarter: 2024Q3

REPORT INFORMATION
  Report Type: Spontaneous
  Country: DE (occurrence: DE)
  Receive Date: 20240716
  Receipt Date: 20240716
  Transmission Date: 20241017
  Serious: Yes (Hospitalization, Other)
  Sender: RANBAXY
  Company Number: DE-SUN PHARMACEUTICAL INDUSTRIES LTD-2024RR-456681

PATIENT
  Age: 31 Year
  Sex: Male
  Weight: 70 kg

DRUGS (1)
  1. TADALAFIL [Suspect]
     Active Substance: TADALAFIL
     Indication: Erectile dysfunction
     Dosage: 10 MG SINGLE
     Route: 048
     Dates: start: 20240202, end: 20240202

REACTIONS (4)
  - Status epilepticus [Recovered/Resolved]
  - Rhabdomyolysis [Recovered/Resolved]
  - Spinal fracture [Recovered/Resolved]
  - Tongue biting [Recovered/Resolved]

NARRATIVE: CASE EVENT DATE: 20240203
